FAERS Safety Report 7453990-7 (Version None)
Quarter: 2011Q2

REPORT INFORMATION
  Report Type: 
  Country: None (occurrence: None)
  Receive Date: 20110502
  Receipt Date: 20110421
  Transmission Date: 20111010
  Serious: Yes (Other)
  Sender: FDA-Public Use
  Company Number: US-ROCHE-754164

PATIENT
  Sex: Female
  Weight: 58.1 kg

DRUGS (7)
  1. MINOCIN [Concomitant]
     Route: 048
     Dates: start: 19890621
  2. AMPICILLIN [Concomitant]
     Route: 048
     Dates: start: 19900426
  3. ACCUTANE [Suspect]
     Indication: ACNE
     Route: 048
     Dates: start: 19901006
  4. ORAL CONTRACEPTIVE PILL [Concomitant]
  5. SUMYCIN [Concomitant]
     Route: 048
  6. RETIN-A [Concomitant]
     Dates: start: 19880222
  7. ACCUTANE [Suspect]
     Route: 048
     Dates: end: 19910221

REACTIONS (7)
  - RECTAL POLYP [None]
  - COLITIS ULCERATIVE [None]
  - INFLAMMATORY BOWEL DISEASE [None]
  - ALOPECIA [None]
  - EMOTIONAL DISTRESS [None]
  - IRRITABLE BOWEL SYNDROME [None]
  - CROHN'S DISEASE [None]
